FAERS Safety Report 16613332 (Version 1)
Quarter: 2019Q3

REPORT INFORMATION
  Report Type: Spontaneous
  Country: US (occurrence: US)
  Receive Date: 20190722
  Receipt Date: 20190722
  Transmission Date: 20191004
  Serious: Yes (Life-Threatening, Hospitalization)
  Sender: FDA-Public Use
  Company Number: None

PATIENT
  Age: 55 Year
  Sex: Female

DRUGS (1)
  1. RECLAST [Suspect]
     Active Substance: ZOLEDRONIC ACID
     Indication: OSTEOPOROSIS
     Dosage: INTRAVENOUS; ANNUAL
     Route: 042
     Dates: start: 20190605, end: 20190605

REACTIONS (3)
  - Pain [None]
  - Inflammation [None]
  - Pulmonary embolism [None]

NARRATIVE: CASE EVENT DATE: 20190606
